FAERS Safety Report 20256006 (Version 2)
Quarter: 2022Q1

REPORT INFORMATION
  Report Type: Report from Study
  Country: CA (occurrence: CA)
  Receive Date: 20211230
  Receipt Date: 20220128
  Transmission Date: 20220424
  Serious: Yes (Death)
  Sender: FDA-Public Use
  Company Number: CA-HLS-202108992

PATIENT
  Age: 36 Year
  Sex: Male

DRUGS (4)
  1. CLOZARIL [Suspect]
     Active Substance: CLOZAPINE
     Indication: Schizophrenia
     Route: 048
     Dates: start: 20030730, end: 20210901
  2. CLOZARIL [Suspect]
     Active Substance: CLOZAPINE
     Indication: Schizophrenia
     Route: 065
  3. CITALOPRAM [Concomitant]
     Active Substance: CITALOPRAM HYDROBROMIDE
     Indication: Product used for unknown indication
     Route: 065
  4. TOPIRAMATE [Concomitant]
     Active Substance: TOPIRAMATE
     Indication: Product used for unknown indication
     Route: 065

REACTIONS (8)
  - Hepatic steatosis [Fatal]
  - Dyspnoea [Fatal]
  - Cardiac arrest [Fatal]
  - Cardiomegaly [Fatal]
  - Fatigue [Fatal]
  - Lethargy [Fatal]
  - Treatment noncompliance [Fatal]
  - Death [Fatal]

NARRATIVE: CASE EVENT DATE: 20210827
